FAERS Safety Report 8779237 (Version 1)
Quarter: 2012Q4

REPORT INFORMATION
  Report Type: 
  Country: US (occurrence: US)
  Receive Date: 20120912
  Receipt Date: 20120912
  Transmission Date: 20130627
  Serious: No
  Sender: FDA-Public Use
  Company Number: US-009507513-1209USA002382

PATIENT

DRUGS (1)
  1. IMPLANON [Suspect]
     Indication: CONTRACEPTION
     Dosage: 1 DF, UNK
     Dates: start: 20120307

REACTIONS (4)
  - Unintended pregnancy [Unknown]
  - Device difficult to use [Unknown]
  - Weight increased [Unknown]
  - Inappropriate schedule of drug administration [Unknown]
